FAERS Safety Report 9065113 (Version 1)
Quarter: 2013Q1

REPORT INFORMATION
  Report Type: Spontaneous
  Country: DE (occurrence: DE)
  Receive Date: 20130128
  Receipt Date: 20130128
  Transmission Date: 20140127
  Serious: Yes (Hospitalization, Other)
  Sender: FDA-Public Use
  Company Number: PHHY2012DE112560

PATIENT
  Sex: Male

DRUGS (10)
  1. TASIGNA [Suspect]
     Indication: CHRONIC MYELOID LEUKAEMIA
     Dosage: 300 MG, BID
     Route: 048
     Dates: start: 201202
  2. PANTOZOL [Concomitant]
     Dosage: 40 MG, UNK
     Route: 042
  3. BISOPROLOL [Concomitant]
     Dosage: 5 MG, UNK
  4. LISINOPRIL [Concomitant]
     Dosage: 10 MG, UNK
  5. PREDNISOLONE [Concomitant]
     Dosage: 20 MG, UNK
  6. SIMVASTATIN [Concomitant]
     Dosage: 20 MG, UNK
  7. KEPPRA [Concomitant]
     Dosage: 1000 MG, BID
  8. PIRITRAMIDE [Concomitant]
  9. ZIENAM [Concomitant]
  10. FRAGMIN [Concomitant]

REACTIONS (4)
  - Postoperative respiratory failure [Unknown]
  - Lung infection [Recovering/Resolving]
  - Cerebral infarction [Unknown]
  - Mitral valve incompetence [Recovered/Resolved]
